FAERS Safety Report 7060349-3 (Version None)
Quarter: 2010Q4

REPORT INFORMATION
  Report Type: 
  Country: None (occurrence: None)
  Receive Date: 20101025
  Receipt Date: 20101013
  Transmission Date: 20110411
  Serious: Yes (Hospitalization)
  Sender: FDA-Public Use
  Company Number: B0678577A

PATIENT
  Sex: Female

DRUGS (7)
  1. TALAVIR [Suspect]
     Indication: HERPES ZOSTER
     Route: 048
     Dates: start: 20100917, end: 20100919
  2. TICLID [Suspect]
     Indication: PRODUCT USED FOR UNKNOWN INDICATION
     Dosage: 250MG PER DAY
     Route: 048
     Dates: start: 20100818, end: 20100919
  3. OMEPRAZOLE [Concomitant]
     Dosage: 20MG PER DAY
     Route: 048
  4. VALPRESSION [Concomitant]
     Dosage: 160MG PER DAY
     Route: 048
  5. LENDORMIN [Concomitant]
     Dosage: .25MG PER DAY
     Route: 048
  6. DOBETIN [Concomitant]
     Dosage: 1000UGML PER DAY
     Route: 030
  7. LAEVOLAC [Concomitant]
     Route: 065

REACTIONS (1)
  - THROMBOTIC THROMBOCYTOPENIC PURPURA [None]
